FAERS Safety Report 8405465-6 (Version None)
Quarter: 2012Q2

REPORT INFORMATION
  Report Type: 
  Country: None (occurrence: None)
  Receive Date: 20120604
  Receipt Date: 20120522
  Transmission Date: 20120825
  Serious: Yes (Life-Threatening, Hospitalization, Disabling)
  Sender: FDA-Public Use
  Company Number: DE-BIOGENIDEC-2010BI040801

PATIENT
  Age: 49 Year
  Sex: Male

DRUGS (3)
  1. INSULIN [Concomitant]
     Route: 058
  2. UNKNOWN DRUG [Concomitant]
     Indication: PANCREATIC INSUFFICIENCY
  3. AVONEX [Suspect]
     Indication: RELAPSING-REMITTING MULTIPLE SCLEROSIS
     Route: 030
     Dates: start: 20080401

REACTIONS (4)
  - POST PROCEDURAL INFECTION [None]
  - AORTIC OCCLUSION [None]
  - ACUTE HEPATIC FAILURE [None]
  - CHILLS [None]
